FAERS Safety Report 5272793-5 (Version None)
Quarter: 2007Q1

REPORT INFORMATION
  Report Type: 
  Country: None (occurrence: None)
  Receive Date: 20070322
  Receipt Date: 20070316
  Transmission Date: 20070707
  Serious: Yes (Hospitalization)
  Sender: FDA-Public Use
  Company Number: GB-ROCHE-487740

PATIENT
  Age: 73 Year
  Sex: Female
  Weight: 57.7 kg

DRUGS (7)
  1. CAPECITABINE [Suspect]
     Dosage: GIVEN FOR 14 DAYS FOLLOWED BY ONE WEEK REST.
     Route: 048
     Dates: start: 20050124, end: 20050213
  2. GEMCITABINE [Suspect]
     Dosage: GIVEN ON DAY ONE AND EIGHT OF A THREE-WEEK-CYCLE.
     Route: 042
     Dates: start: 20050124, end: 20050124
  3. GEMCITABINE [Suspect]
     Dosage: GIVEN ON DAY ONE AND EIGHT OF A THREE-WEEK-CYCLE.
     Route: 042
     Dates: start: 20050131, end: 20050131
  4. GEMCITABINE [Suspect]
     Dosage: GIVEN ON DAY ONE AND EIGHT OF A THREE-WEEK-CYCLE.
     Route: 042
     Dates: start: 20050207, end: 20050207
  5. LANSOPRAZOLE [Concomitant]
     Indication: ILL-DEFINED DISORDER
     Route: 048
  6. DIHYDROCODEINE BITARTRATE INJ [Concomitant]
     Indication: PAIN
     Dosage: DRUG REPORTED AS DIHYDROCORDINE.
     Route: 048
  7. ACETAMINOPHEN [Concomitant]
     Indication: PAIN
     Route: 048

REACTIONS (1)
  - JAUNDICE CHOLESTATIC [None]
